FAERS Safety Report 12689472 (Version 1)
Quarter: 2016Q3

REPORT INFORMATION
  Report Type: Report from Study
  Country: CZ (occurrence: CZ)
  Receive Date: 20160826
  Receipt Date: 20160826
  Transmission Date: 20161109
  Serious: Yes (Hospitalization)
  Sender: FDA-Public Use
  Company Number: CZ-GLAXOSMITHKLINE-CZ2016GSK123194

PATIENT
  Age: 26 Year
  Sex: Male
  Weight: 94 kg

DRUGS (10)
  1. FORTECORTIN [Concomitant]
     Active Substance: DEXAMETHASONE
     Dosage: UNK
     Dates: start: 20160704
  2. LAGOSA [Concomitant]
     Dosage: UNK
     Dates: start: 201607
  3. SIOFOR [Concomitant]
     Active Substance: METFORMIN HYDROCHLORIDE
     Dosage: UNK
     Dates: start: 20160721
  4. CERITINIB [Suspect]
     Active Substance: CERITINIB
     Indication: NEOPLASM
     Dosage: 750 MG, UNK
     Route: 048
     Dates: start: 20160617, end: 20160715
  5. CERITINIB [Suspect]
     Active Substance: CERITINIB
     Indication: ANAPLASTIC LYMPHOMA KINASE GENE MUTATION
  6. DEGAN [Concomitant]
     Active Substance: METOCLOPRAMIDE HYDROCHLORIDE
     Dosage: UNK
     Dates: start: 20160620, end: 20160715
  7. IMODINE [Concomitant]
     Dosage: UNK
     Dates: start: 20160620, end: 20160715
  8. CEFUROXIME AXETIL. [Suspect]
     Active Substance: CEFUROXIME AXETIL
     Indication: PRODUCT USED FOR UNKNOWN INDICATION
     Dosage: 500 MG, UNK
     Dates: start: 20160722, end: 20160729
  9. VALETOL [Concomitant]
     Dosage: UNK
     Dates: start: 20160704, end: 20160715
  10. CERITINIB [Suspect]
     Active Substance: CERITINIB
     Indication: HAEMATOLOGICAL MALIGNANCY

REACTIONS (4)
  - Mucosal inflammation [Recovered/Resolved]
  - Rash generalised [Recovered/Resolved]
  - Peripheral swelling [Recovered/Resolved]
  - Rash [Recovered/Resolved]

NARRATIVE: CASE EVENT DATE: 20160630
